FAERS Safety Report 4689215-5 (Version None)
Quarter: 2005Q2

REPORT INFORMATION
  Report Type: 
  Country: None (occurrence: None)
  Receive Date: 20050608
  Receipt Date: 20050118
  Transmission Date: 20051028
  Serious: No
  Sender: FDA-Public Use
  Company Number: 2005-BP-00884BP

PATIENT
  Age: 72 Year
  Sex: Female

DRUGS (9)
  1. SPIRIVA [Suspect]
     Indication: CHRONIC OBSTRUCTIVE PULMONARY DISEASE
     Dosage: 18 MCG (18 MCG, QD), IH
     Route: 055
     Dates: start: 20040101
  2. SPIRIVA [Suspect]
  3. ADVAIR DISKUS 100/50 [Concomitant]
  4. TENORMIN [Concomitant]
  5. NITRO(GLYCERYL TRINITRATE) [Concomitant]
  6. ACETYLSALICYLIC ACID SRT [Concomitant]
  7. ALTACE [Concomitant]
  8. ACIPHEX(RABAPRAZOLE SODIUM) [Concomitant]
  9. ASPIRIN [Concomitant]

REACTIONS (1)
  - DYSGEUSIA [None]
